FAERS Safety Report 5600264-2 (Version None)
Quarter: 2007Q4

REPORT INFORMATION
  Report Type: 
  Country: None (occurrence: None)
  Receive Date: 20071227
  Receipt Date: 20070924
  Transmission Date: 20080405
  Serious: Yes (Other)
  Sender: FDA-Public Use
  Company Number: 2007S1000252

PATIENT
  Age: 45 Year
  Sex: Male

DRUGS (4)
  1. ACITRETIN [Suspect]
     Indication: PSORIASIS
     Dosage: 1 MG/KG; PO
     Route: 048
  2. LITHIUM [Concomitant]
  3. MIRTAZAPINE [Concomitant]
  4. OLANZAPINE [Concomitant]

REACTIONS (2)
  - HEPATIC ENZYME INCREASED [None]
  - PSORIASIS [None]
